FAERS Safety Report 9009217 (Version 1)
Quarter: 2013Q1

REPORT INFORMATION
  Report Type: Spontaneous
  Country: US (occurrence: US)
  Receive Date: 20130111
  Receipt Date: 20130111
  Transmission Date: 20140127
  Serious: No
  Sender: FDA-Public Use
  Company Number: US-PFIZER INC-2013007972

PATIENT
  Age: 59 Year
  Sex: Female
  Weight: 122 kg

DRUGS (5)
  1. ZYVOX [Suspect]
     Indication: SEPSIS
     Dosage: 600 MG, 2X/DAY
     Route: 048
     Dates: start: 20121226, end: 20130106
  2. LANTUS SOLOSTAR [Concomitant]
     Indication: DIABETES MELLITUS
     Dosage: 18 IU,DAILY
  3. TENORMIN [Concomitant]
     Indication: HYPERTENSION
     Dosage: 50 MG,DAILY
  4. ATIVAN [Concomitant]
     Indication: ANXIETY
     Dosage: 1 MG, 4X/DAY
  5. ZYVOX [Concomitant]
     Indication: SEPSIS
     Dosage: UNK
     Route: 042
     Dates: start: 20121222, end: 20121225

REACTIONS (3)
  - Skin exfoliation [Recovering/Resolving]
  - Erythema [Recovering/Resolving]
  - Pain in extremity [Recovering/Resolving]
